FAERS Safety Report 7366625-9 (Version None)
Quarter: 2011Q1

REPORT INFORMATION
  Report Type: 
  Country: None (occurrence: None)
  Receive Date: 20110317
  Receipt Date: 20110317
  Transmission Date: 20110831
  Serious: Yes (Life-Threatening)
  Sender: FDA-Public Use
  Company Number: None

PATIENT
  Age: 80 Year
  Sex: Male
  Weight: 58.9676 kg

DRUGS (2)
  1. COUMADIN [Suspect]
     Indication: THROMBOSIS
     Dates: start: 20110312, end: 20110316
  2. COUMADIN [Suspect]
     Indication: PULMONARY THROMBOSIS
     Dates: start: 20110312, end: 20110316

REACTIONS (4)
  - SKIN DISCOLOURATION [None]
  - OEDEMA PERIPHERAL [None]
  - NECROSIS [None]
  - SKIN ULCER [None]
